FAERS Safety Report 6094440-5 (Version None)
Quarter: 2009Q1

REPORT INFORMATION
  Report Type: 
  Country: None (occurrence: None)
  Receive Date: 20090224
  Receipt Date: 20090209
  Transmission Date: 20090719
  Serious: Yes (Hospitalization, Other)
  Sender: FDA-Public Use
  Company Number: 230643J08CAN

PATIENT
  Age: 57 Year
  Sex: Female

DRUGS (4)
  1. REBIF [Suspect]
     Indication: MULTIPLE SCLEROSIS
     Dosage: 22 MCG, 3 IN 1 WEEKS, SUBCUTANEOUS
     Route: 058
     Dates: start: 20010621
  2. COBERSYL (PERINDIOPRIL) [Concomitant]
  3. CLONAZEPAM [Concomitant]
  4. EFFEXOR [Concomitant]

REACTIONS (28)
  - ARTHRALGIA [None]
  - BONE PAIN [None]
  - BREAST CANCER [None]
  - CEREBROVASCULAR ACCIDENT [None]
  - CONTUSION [None]
  - DEPRESSION [None]
  - DYSPNOEA [None]
  - EATING DISORDER [None]
  - INFLUENZA LIKE ILLNESS [None]
  - INJECTION SITE HAEMATOMA [None]
  - INJECTION SITE MASS [None]
  - INSOMNIA [None]
  - INSTILLATION SITE ERYTHEMA [None]
  - MELANOCYTIC NAEVUS [None]
  - MULTIPLE SCLEROSIS RELAPSE [None]
  - MYOCARDIAL INFARCTION [None]
  - NUCLEAR MAGNETIC RESONANCE IMAGING BRAIN ABNORMAL [None]
  - NYSTAGMUS [None]
  - PAIN [None]
  - PAIN IN EXTREMITY [None]
  - POSTOPERATIVE WOUND COMPLICATION [None]
  - RADIATION INJURY [None]
  - RASH MACULO-PAPULAR [None]
  - SCAR [None]
  - SENSATION OF HEAVINESS [None]
  - STRESS [None]
  - TENDERNESS [None]
  - WOUND HAEMORRHAGE [None]
